FAERS Safety Report 7488929-1 (Version None)
Quarter: 2011Q2

REPORT INFORMATION
  Report Type: 
  Country: None (occurrence: None)
  Receive Date: 20110518
  Receipt Date: 20110418
  Transmission Date: 20111010
  Serious: No
  Sender: FDA-Public Use
  Company Number: US-BAYER-2011-034777

PATIENT
  Sex: Female

DRUGS (1)
  1. ALEVE (CAPLET) [Suspect]
     Indication: MUSCLE SPASMS
     Dosage: 220 MG, BID, BOTTLE COUNT 20S
     Route: 048

REACTIONS (1)
  - MUSCLE SPASMS [None]
